FAERS Safety Report 4543196-3 (Version None)
Quarter: 2004Q4

REPORT INFORMATION
  Report Type: 
  Country: None (occurrence: None)
  Receive Date: 20041230
  Receipt Date: 20041230
  Transmission Date: 20050328
  Serious: Yes (Death)
  Sender: FDA-Public Use
  Company Number: None

PATIENT
  Age: 11 Year
  Sex: Male
  Weight: 31.7518 kg

DRUGS (2)
  1. DDAVP [Suspect]
     Indication: ENURESIS
     Dosage: ORAL
     Route: 048
     Dates: start: 20041201, end: 20041208
  2. DDAVP [Suspect]
     Indication: ENURESIS
     Dosage: NASAL
     Route: 045
     Dates: start: 20040501, end: 20041130

REACTIONS (3)
  - ADRENALITIS [None]
  - AUTOIMMUNE DISORDER [None]
  - MALAISE [None]
